FAERS Safety Report 22158648 (Version 1)
Quarter: 2023Q1

REPORT INFORMATION
  Report Type: Spontaneous
  Country: US (occurrence: US)
  Receive Date: 20230331
  Receipt Date: 20230331
  Transmission Date: 20230418
  Serious: No
  Sender: FDA-Public Use
  Company Number: US-STRIDES ARCOLAB LIMITED-2023SP002589

PATIENT
  Age: 51 Year
  Sex: Female

DRUGS (3)
  1. METHOTREXATE [Suspect]
     Active Substance: METHOTREXATE
     Indication: Acute febrile neutrophilic dermatosis
     Dosage: 12.5 MILLIGRAM, ONCE A WEEK
     Route: 065
  2. TRIAMCINOLONE ACETONIDE [Suspect]
     Active Substance: TRIAMCINOLONE ACETONIDE
     Indication: Acute febrile neutrophilic dermatosis
     Dosage: UNK
     Route: 061
  3. PREDNISONE [Concomitant]
     Active Substance: PREDNISONE
     Indication: Acute febrile neutrophilic dermatosis
     Dosage: UNK
     Route: 065

REACTIONS (2)
  - Fatigue [Unknown]
  - Off label use [Unknown]
